FAERS Safety Report 9515431 (Version 1)
Quarter: 2013Q3

REPORT INFORMATION
  Report Type: Spontaneous
  Country: ZA (occurrence: ZA)
  Receive Date: 20130911
  Receipt Date: 20130911
  Transmission Date: 20140515
  Serious: Yes (Other)
  Sender: FDA-Public Use
  Company Number: PHHY2013ZA098975

PATIENT
  Sex: Female
  Weight: 2.58 kg

DRUGS (1)
  1. GLEEVEC [Suspect]
     Dosage: 200 MG, (MOTHER DOSE)
     Dates: start: 200712

REACTIONS (3)
  - Neonatal respiratory distress syndrome [Unknown]
  - Amniocentesis abnormal [Unknown]
  - Foetal exposure during pregnancy [Unknown]
